FAERS Safety Report 17653160 (Version 2)
Quarter: 2020Q2

REPORT INFORMATION
  Report Type: Spontaneous
  Country: US (occurrence: US)
  Receive Date: 20200409
  Receipt Date: 20200414
  Transmission Date: 20200713
  Serious: Yes (Other)
  Sender: FDA-Public Use
  Company Number: US-LUNDBECK-DKLU3015143

PATIENT
  Age: 12 Month
  Sex: Female
  Weight: 11 kg

DRUGS (2)
  1. PREDNISOLONE. [Concomitant]
     Active Substance: PREDNISOLONE
     Indication: INFANTILE SPASMS
     Route: 065
  2. SABRIL [Suspect]
     Active Substance: VIGABATRIN
     Indication: INFANTILE SPASMS
     Route: 048

REACTIONS (2)
  - Drug withdrawal convulsions [Recovered/Resolved]
  - Product dose omission [Recovered/Resolved]
